FAERS Safety Report 5796628-7 (Version None)
Quarter: 2008Q2

REPORT INFORMATION
  Report Type: 
  Country: None (occurrence: None)
  Receive Date: 20080627
  Receipt Date: 20080616
  Transmission Date: 20081010
  Serious: Yes (Disabling)
  Sender: FDA-Public Use
  Company Number: 2008AL007315

PATIENT
  Age: 81 Year
  Sex: Female

DRUGS (2)
  1. DIGOXIN [Suspect]
     Indication: ATRIAL FIBRILLATION
  2. BLOOD THINNER UNSPECIFIED [Concomitant]

REACTIONS (7)
  - ABASIA [None]
  - BEDRIDDEN [None]
  - BLOOD DISORDER [None]
  - DIZZINESS [None]
  - IMPAIRED SELF-CARE [None]
  - MALAISE [None]
  - VOMITING [None]
